FAERS Safety Report 8299618-8 (Version None)
Quarter: 2012Q2

REPORT INFORMATION
  Report Type: 
  Country: None (occurrence: None)
  Receive Date: 20120419
  Receipt Date: 20120412
  Transmission Date: 20120825
  Serious: Yes (Hospitalization)
  Sender: FDA-Public Use
  Company Number: JP-GLAXOSMITHKLINE-B0688083A

PATIENT
  Age: 35 Year
  Sex: Female

DRUGS (7)
  1. CLONAZEPAM [Concomitant]
     Dosage: .5MG PER DAY
     Route: 048
  2. PURSENNID [Concomitant]
     Dosage: 12MG PER DAY
     Route: 048
  3. LAMICTAL [Suspect]
     Indication: PRODUCT USED FOR UNKNOWN INDICATION
     Route: 048
     Dates: start: 20100310, end: 20100407
  4. LULLAN [Concomitant]
     Dosage: 8MG PER DAY
     Route: 048
  5. HALCION [Concomitant]
     Dosage: .5MG PER DAY
     Route: 048
  6. EPINASTINE HYDROCHLORIDE [Concomitant]
     Dosage: 20MG PER DAY
     Route: 048
  7. LITHIUM CARBONATE [Concomitant]
     Dosage: 600MG PER DAY
     Route: 048

REACTIONS (18)
  - ERYTHEMA [None]
  - DRUG RASH WITH EOSINOPHILIA AND SYSTEMIC SYMPTOMS [None]
  - EOSINOPHIL COUNT INCREASED [None]
  - ALTERED STATE OF CONSCIOUSNESS [None]
  - DERMATITIS EXFOLIATIVE [None]
  - MUSCLE CONTRACTURE [None]
  - CONVULSION [None]
  - RENAL IMPAIRMENT [None]
  - LYMPHADENOPATHY [None]
  - BLOOD CREATINE PHOSPHOKINASE INCREASED [None]
  - PYREXIA [None]
  - NEUROLEPTIC MALIGNANT SYNDROME [None]
  - DEPRESSED LEVEL OF CONSCIOUSNESS [None]
  - WHITE BLOOD CELL COUNT INCREASED [None]
  - DYSKINESIA [None]
  - FACE OEDEMA [None]
  - RASH [None]
  - HUMAN HERPESVIRUS 6 INFECTION [None]
